FAERS Safety Report 12412537 (Version 1)
Quarter: 2016Q2

REPORT INFORMATION
  Report Type: Spontaneous
  Country: AU (occurrence: AU)
  Receive Date: 20160527
  Receipt Date: 20160527
  Transmission Date: 20160815
  Serious: Yes (Hospitalization)
  Sender: FDA-Public Use
  Company Number: AU-SA-2016SA100360

PATIENT
  Age: 80 Year
  Sex: Male

DRUGS (3)
  1. ENTRESTO [Suspect]
     Active Substance: SACUBITRIL\VALSARTAN
     Indication: LEFT VENTRICULAR FAILURE
     Dosage: (SACUBITRIL, VALSARTAN) TABLET 24/26 MG
     Route: 048
  2. LASIX [Suspect]
     Active Substance: FUROSEMIDE
     Route: 048
  3. LASIX [Suspect]
     Active Substance: FUROSEMIDE
     Route: 048

REACTIONS (3)
  - Glomerular filtration rate decreased [Not Recovered/Not Resolved]
  - Dehydration [Unknown]
  - Renal impairment [Not Recovered/Not Resolved]

NARRATIVE: CASE EVENT DATE: 20160307
